FAERS Safety Report 13911720 (Version 1)
Quarter: 2017Q3

REPORT INFORMATION
  Report Type: Spontaneous
  Country: US (occurrence: US)
  Receive Date: 20170825
  Receipt Date: 20170825
  Transmission Date: 20171127
  Serious: Yes (Other)
  Sender: FDA-Public Use
  Company Number: None

PATIENT
  Age: 7 Year
  Sex: Male
  Weight: 27 kg

DRUGS (1)
  1. MIRALAX [Suspect]
     Active Substance: POLYETHYLENE GLYCOL 3350
     Indication: CONSTIPATION
     Dosage: 1 CAPFUL MIXED IN LIQUID TAKEN BY MOUTH?
     Route: 048
     Dates: start: 20170801, end: 20170821

REACTIONS (4)
  - Anxiety [None]
  - Nightmare [None]
  - Crying [None]
  - Mood swings [None]

NARRATIVE: CASE EVENT DATE: 20170821
